FAERS Safety Report 19739595 (Version 2)
Quarter: 2021Q3

REPORT INFORMATION
  Report Type: Report from Study
  Country: FR (occurrence: FR)
  Receive Date: 20210823
  Receipt Date: 20210824
  Transmission Date: 20211014
  Serious: No
  Sender: FDA-Public Use
  Company Number: FR-EISAI MEDICAL RESEARCH-EC-2021-098325

PATIENT
  Age: 74 Year
  Sex: Male
  Weight: 70.2 kg

DRUGS (15)
  1. DOLIPRANE [Concomitant]
     Active Substance: ACETAMINOPHEN
     Dates: start: 200901
  2. POLYETHYLENE GLYCOL [MACROGOL] [Concomitant]
     Active Substance: POLYETHYLENE GLYCOLS
     Dates: start: 20200425, end: 20200715
  3. PEMBROLIZUMAB. [Suspect]
     Active Substance: PEMBROLIZUMAB
     Indication: NON-SMALL CELL LUNG CANCER
     Route: 042
     Dates: start: 20200403, end: 20200626
  4. CRESTOR [Concomitant]
     Active Substance: ROSUVASTATIN CALCIUM
     Dates: start: 200901, end: 20210112
  5. ACTISKENAN [Concomitant]
     Active Substance: MORPHINE SULFATE
     Dates: start: 20200430, end: 20201009
  6. SODIUM BICARBONATE. [Concomitant]
     Active Substance: SODIUM BICARBONATE
     Dates: start: 20200423
  7. LENVATINIB [Suspect]
     Active Substance: LENVATINIB
     Indication: NON-SMALL CELL LUNG CANCER
     Route: 048
     Dates: start: 20200403
  8. PEMBROLIZUMAB. [Suspect]
     Active Substance: PEMBROLIZUMAB
     Route: 042
     Dates: start: 20200807
  9. OXYGEN. [Concomitant]
     Active Substance: OXYGEN
     Dates: start: 20200424, end: 20201204
  10. PEMBROLIZUMAB. [Suspect]
     Active Substance: PEMBROLIZUMAB
     Route: 042
     Dates: start: 20200717, end: 20200717
  11. NAFRONYL OXALATE [Concomitant]
     Active Substance: NAFRONYL OXALATE
     Dates: start: 200901, end: 20201121
  12. ALPRAZOLAM. [Concomitant]
     Active Substance: ALPRAZOLAM
     Dates: start: 201911
  13. VENTOLIN HFA [Concomitant]
     Active Substance: ALBUTEROL SULFATE
     Dates: start: 202001, end: 20201220
  14. ASPIRINE [Concomitant]
     Active Substance: ASPIRIN
     Dates: start: 200901
  15. SKENAN [Concomitant]
     Active Substance: MORPHINE SULFATE
     Dates: start: 20200404, end: 20200811

REACTIONS (1)
  - Dyspnoea [Not Recovered/Not Resolved]

NARRATIVE: CASE EVENT DATE: 20200718
